FAERS Safety Report 6291380-3 (Version None)
Quarter: 2009Q3

REPORT INFORMATION
  Report Type: 
  Country: None (occurrence: None)
  Receive Date: 20090729
  Receipt Date: 20090729
  Transmission Date: 20100115
  Serious: Yes (Hospitalization)
  Sender: FDA-Public Use
  Company Number: None

PATIENT
  Sex: Male
  Weight: 107.5 kg

DRUGS (3)
  1. AVASTIN [Suspect]
     Indication: PROSTATE CANCER
     Dosage: 10MG/KG, IV, Q2WEEKS
     Route: 042
     Dates: start: 20090706
  2. TEMSIROLIMUS [Suspect]
     Indication: PROSTATE CANCER
     Dosage: 25MG, IV, WEEKLY
     Route: 042
     Dates: start: 20090629
  3. TEMSIROLIMUS [Suspect]
     Indication: PROSTATE CANCER
     Dosage: 25MG, IV, WEEKLY
     Route: 042
     Dates: start: 20090706

REACTIONS (5)
  - CONDITION AGGRAVATED [None]
  - DISEASE PROGRESSION [None]
  - FATIGUE [None]
  - GENERAL PHYSICAL HEALTH DETERIORATION [None]
  - PAIN [None]
